FAERS Safety Report 6748774-9 (Version None)
Quarter: 2010Q2

REPORT INFORMATION
  Report Type: 
  Country: None (occurrence: None)
  Receive Date: 20100601
  Receipt Date: 20100519
  Transmission Date: 20101027
  Serious: Yes (Other)
  Sender: FDA-Public Use
  Company Number: PHHY2010US32660

PATIENT
  Age: 76 Year
  Sex: Male

DRUGS (3)
  1. GLEEVEC [Suspect]
     Indication: CHRONIC MYELOID LEUKAEMIA
     Dosage: 400 MG, UNK
     Dates: start: 20031101
  2. GLEEVEC [Suspect]
     Dosage: 600 MG, UNK
     Dates: start: 20080101
  3. GLEEVEC [Suspect]
     Dosage: 400 MG, UNK

REACTIONS (5)
  - BIOPSY BONE MARROW ABNORMAL [None]
  - GENE MUTATION IDENTIFICATION TEST POSITIVE [None]
  - HAEMOGLOBIN DECREASED [None]
  - MUSCLE SPASMS [None]
  - PLATELET COUNT INCREASED [None]
